FAERS Safety Report 6496412-5 (Version None)
Quarter: 2009Q4

REPORT INFORMATION
  Report Type: 
  Country: None (occurrence: None)
  Receive Date: 20091214
  Receipt Date: 20091130
  Transmission Date: 20100525
  Serious: Yes (Other)
  Sender: FDA-Public Use
  Company Number: GB-MYLANLABS-2009S1017554

PATIENT
  Age: 75 Year
  Sex: Female
  Weight: 96 kg

DRUGS (3)
  1. ALENDRONATE SODIUM [Suspect]
     Indication: POLYMYALGIA RHEUMATICA
     Route: 048
     Dates: start: 20030101
  2. ADCAL-D3 [Concomitant]
     Indication: DRUG USE FOR UNKNOWN INDICATION
  3. LANSOPRAZOLE [Concomitant]
     Indication: DRUG USE FOR UNKNOWN INDICATION

REACTIONS (2)
  - FEMUR FRACTURE [None]
  - IMPAIRED HEALING [None]
